FAERS Safety Report 9259323 (Version 6)
Quarter: 2013Q4

REPORT INFORMATION
  Report Type: Report from Study
  Country: CA (occurrence: CA)
  Receive Date: 20130427
  Receipt Date: 20131017
  Transmission Date: 20140711
  Serious: Yes (Other)
  Sender: FDA-Public Use
  Company Number: CA-ROCHE-1201686

PATIENT
  Sex: Male

DRUGS (6)
  1. ZELBORAF [Suspect]
     Indication: METASTATIC MALIGNANT MELANOMA
     Route: 048
     Dates: start: 201212
  2. ZELBORAF [Suspect]
     Route: 048
     Dates: start: 201301, end: 201309
  3. VITAMIN C [Concomitant]
  4. COD LIVER OIL [Concomitant]
  5. OMEGA 3 [Concomitant]
  6. COENZYME Q-10 [Concomitant]

REACTIONS (7)
  - Blepharitis [Not Recovered/Not Resolved]
  - Arthralgia [Not Recovered/Not Resolved]
  - Myalgia [Recovering/Resolving]
  - Rash papular [Recovering/Resolving]
  - Asthenia [Recovering/Resolving]
  - Pain in extremity [Unknown]
  - Disease progression [Unknown]
